FAERS Safety Report 25942639 (Version 1)
Quarter: 2025Q4

REPORT INFORMATION
  Report Type: Spontaneous
  Country: US (occurrence: US)
  Receive Date: 20251021
  Receipt Date: 20251021
  Transmission Date: 20260117
  Serious: Yes (Hospitalization, Other)
  Sender: QUAGEN PHARMACEUTICALS
  Company Number: US-QUAGEN-2025QUASPO00686

PATIENT
  Sex: Male

DRUGS (1)
  1. GLYCOPYRROLATE [Suspect]
     Active Substance: GLYCOPYRROLATE
     Indication: Product used for unknown indication
     Route: 065

REACTIONS (5)
  - Choking [Recovering/Resolving]
  - Aspiration [Recovering/Resolving]
  - Feeling abnormal [Unknown]
  - Cough [Recovered/Resolved]
  - Secretion discharge [Recovering/Resolving]
